FAERS Safety Report 19565124 (Version 5)
Quarter: 2024Q3

REPORT INFORMATION
  Report Type: Report from Study
  Country: BR (occurrence: BR)
  Receive Date: 20210714
  Receipt Date: 20240821
  Transmission Date: 20241017
  Serious: Yes (Other)
  Sender: TAKEDA
  Company Number: BR-TAKEDA-2021TUS043651

PATIENT
  Sex: Female
  Weight: 68 kg

DRUGS (16)
  1. VEDOLIZUMAB [Suspect]
     Active Substance: VEDOLIZUMAB
     Indication: Colitis ulcerative
     Dosage: 300 MILLIGRAM
     Route: 042
     Dates: start: 20210625
  2. VEDOLIZUMAB [Suspect]
     Active Substance: VEDOLIZUMAB
     Dosage: 300 MILLIGRAM, Q4WEEKS
     Route: 042
  3. MESALAMINE [Suspect]
     Active Substance: MESALAMINE
     Indication: Colitis ulcerative
     Dosage: 800 MILLIGRAM, TID
     Route: 065
  4. MESALAMINE [Suspect]
     Active Substance: MESALAMINE
     Indication: Abdominal pain
     Dosage: UNK
     Route: 048
     Dates: start: 2008, end: 2017
  5. PREGABALIN [Concomitant]
     Active Substance: PREGABALIN
     Indication: Neuralgia
     Dosage: 75 MILLIGRAM, QD
     Dates: start: 2017
  6. PREDNISONE [Concomitant]
     Active Substance: PREDNISONE
     Indication: Vasculitis
     Dosage: UNK
  7. PREDNISONE [Concomitant]
     Active Substance: PREDNISONE
     Indication: Neuropathy peripheral
  8. PREDNISONE [Concomitant]
     Active Substance: PREDNISONE
     Indication: Thrombocytopenia
  9. AZATHIOPRINE [Concomitant]
     Active Substance: AZATHIOPRINE
     Indication: Vasculitis
     Dosage: UNK
  10. AZATHIOPRINE [Concomitant]
     Active Substance: AZATHIOPRINE
     Indication: Neuropathy peripheral
  11. AZATHIOPRINE [Concomitant]
     Active Substance: AZATHIOPRINE
     Indication: Thrombocytopenia
  12. CIPROFLOXACIN [Concomitant]
     Active Substance: CIPROFLOXACIN
     Dosage: UNK UNK, Q12H
  13. RITUXIMAB [Concomitant]
     Active Substance: RITUXIMAB
     Dosage: UNK
  14. CYCLOPHOSPHAMIDE [Concomitant]
     Active Substance: CYCLOPHOSPHAMIDE
     Indication: Vasculitis
     Dosage: UNK
  15. CYCLOPHOSPHAMIDE [Concomitant]
     Active Substance: CYCLOPHOSPHAMIDE
     Indication: Neuropathy peripheral
  16. CYCLOPHOSPHAMIDE [Concomitant]
     Active Substance: CYCLOPHOSPHAMIDE
     Indication: Thrombocytopenia

REACTIONS (14)
  - Colitis ulcerative [Unknown]
  - Drug dependence [Unknown]
  - Rectal haemorrhage [Not Recovered/Not Resolved]
  - Central nervous system vasculitis [Recovered/Resolved]
  - Neuropathy peripheral [Unknown]
  - Thrombocytopenia [Recovered/Resolved]
  - Product availability issue [Unknown]
  - Weight decreased [Not Recovered/Not Resolved]
  - Gastrointestinal pain [Not Recovered/Not Resolved]
  - Diarrhoea [Not Recovered/Not Resolved]
  - Gastrointestinal disorder [Unknown]
  - Vasculitis [Unknown]
  - Abdominal pain [Not Recovered/Not Resolved]
  - Arthralgia [Not Recovered/Not Resolved]
